FAERS Safety Report 4275628-2 (Version None)
Quarter: 2004Q1

REPORT INFORMATION
  Report Type: 
  Country: None (occurrence: None)
  Receive Date: 20040116
  Receipt Date: 20040105
  Transmission Date: 20041129
  Serious: Yes (Other)
  Sender: FDA-Public Use
  Company Number: US-JNJFOC-20031002801

PATIENT
  Age: 47 Year
  Sex: Male

DRUGS (13)
  1. REMICADE [Suspect]
     Indication: CROHN'S DISEASE
     Dosage: INTRAVENOUS
     Route: 042
     Dates: start: 20020101
  2. REMICADE [Suspect]
     Indication: CROHN'S DISEASE
     Dosage: INTRAVENOUS
     Route: 042
     Dates: start: 20030301
  3. REMICADE [Suspect]
     Indication: CROHN'S DISEASE
     Dosage: INTRAVENOUS
     Route: 042
     Dates: start: 20030828
  4. REMICADE [Suspect]
     Indication: CROHN'S DISEASE
     Dosage: INTRAVENOUS
     Route: 042
     Dates: start: 20031001
  5. PREDNISONE [Concomitant]
  6. ENTOCORT (BUDESONIDE) [Concomitant]
  7. ASACOL [Concomitant]
  8. VITAMIN B12 [Concomitant]
  9. VIOXX [Concomitant]
  10. NEXIUM (ESOMEPRZOLE) [Concomitant]
  11. BENADRYL [Concomitant]
  12. ALLEGRA [Concomitant]
  13. TYLENOL [Concomitant]

REACTIONS (13)
  - ARTHRALGIA [None]
  - CONDITION AGGRAVATED [None]
  - CROHN'S DISEASE [None]
  - ENTERITIS [None]
  - FATIGUE [None]
  - GASTROINTESTINAL HAEMORRHAGE [None]
  - HYPOKINESIA [None]
  - HYPOTENSION [None]
  - INTERMITTENT CLAUDICATION [None]
  - LETHARGY [None]
  - SERUM SICKNESS [None]
  - SYNCOPE [None]
  - URTICARIA [None]
